FAERS Safety Report 7334837-6 (Version None)
Quarter: 2011Q1

REPORT INFORMATION
  Report Type: 
  Country: None (occurrence: None)
  Receive Date: 20110224
  Receipt Date: 20110208
  Transmission Date: 20110831
  Serious: Yes (Death)
  Sender: FDA-Public Use
  Company Number: 2011020075

PATIENT
  Age: 37 Year
  Sex: Female

DRUGS (14)
  1. ARIPIPRAZOLE [Suspect]
  2. PREDNISONE [Suspect]
  3. LEVOTHYROXINE (LEVOTHYROXINE) [Suspect]
  4. FENTANYL [Suspect]
  5. CLONAZEPAM [Suspect]
  6. TOPIRAMATE [Suspect]
  7. OXCARBAZEPINE [Suspect]
  8. ETHANOL [Suspect]
  9. GEMFIBROZIL [Suspect]
  10. SIMVASTATIN [Concomitant]
  11. DULOXETINE (DULOXETINE) [Suspect]
  12. METFORMIN [Suspect]
  13. RANITIDINE [Concomitant]
  14. BUPROPION ER (BUPROPION (EXTENDED RELEASE)) [Suspect]

REACTIONS (3)
  - CARDIAC ARREST [None]
  - COMPLETED SUICIDE [None]
  - RESPIRATORY ARREST [None]
